FAERS Safety Report 6243193-6 (Version None)
Quarter: 2009Q2

REPORT INFORMATION
  Report Type: 
  Country: None (occurrence: None)
  Receive Date: 20090622
  Receipt Date: 20090622
  Transmission Date: 20091009
  Serious: Yes (Other)
  Sender: FDA-Public Use
  Company Number: None

PATIENT
  Age: 52 Year
  Sex: Female
  Weight: 80.7403 kg

DRUGS (1)
  1. CEFUROXIME [Suspect]
     Indication: RASH
     Dosage: 1 TABLET  TWICE DAILY PO
     Route: 048
     Dates: start: 20090503, end: 20090503

REACTIONS (10)
  - ABDOMINAL PAIN [None]
  - ABDOMINAL PAIN UPPER [None]
  - APPARENT DEATH [None]
  - DIARRHOEA [None]
  - LACRIMATION INCREASED [None]
  - NAUSEA [None]
  - NONSPECIFIC REACTION [None]
  - RHINORRHOEA [None]
  - SALIVARY HYPERSECRETION [None]
  - VOMITING [None]
